FAERS Safety Report 9056477 (Version 2)
Quarter: 2013Q1

REPORT INFORMATION
  Report Type: Spontaneous
  Country: CO (occurrence: CO)
  Receive Date: 20130204
  Receipt Date: 20130208
  Transmission Date: 20140127
  Serious: Yes (Death)
  Sender: FDA-Public Use
  Company Number: CO-PFIZER INC-2013040776

PATIENT
  Age: 44 Year
  Sex: Female

DRUGS (3)
  1. EFEXOR [Suspect]
     Indication: ANOREXIA NERVOSA
     Dosage: 75 MG, 1X/DAY
     Route: 065
     Dates: start: 2012
  2. EFEXOR [Suspect]
     Indication: FATIGUE
  3. EFEXOR [Suspect]
     Indication: DEPRESSED MOOD

REACTIONS (2)
  - Colon cancer [Fatal]
  - Off label use [Unknown]
